FAERS Safety Report 4387458-1 (Version None)
Quarter: 2004Q2

REPORT INFORMATION
  Report Type: 
  Country: None (occurrence: None)
  Receive Date: 20040630
  Receipt Date: 20040310
  Transmission Date: 20050107
  Serious: No
  Sender: FDA-Public Use
  Company Number: US-BRISTOL-MYERS SQUIBB COMPANY-12536017

PATIENT
  Age: 41 Year
  Sex: Male

DRUGS (4)
  1. REYATAZ [Suspect]
     Indication: HIV INFECTION
     Route: 048
     Dates: start: 20040222, end: 20040226
  2. KALETRA [Concomitant]
     Dates: start: 20040222
  3. TRIZIVIR [Concomitant]
  4. FUZEON [Concomitant]

REACTIONS (2)
  - HYPERBILIRUBINAEMIA [None]
  - JAUNDICE [None]
